FAERS Safety Report 10249171 (Version 1)
Quarter: 2014Q2

REPORT INFORMATION
  Report Type: Spontaneous
  Country: NL (occurrence: None)
  Receive Date: 20140618
  Receipt Date: 20140618
  Transmission Date: 20141212
  Serious: Yes (Other)
  Sender: FDA-Public Use
  Company Number: FK201402360

PATIENT
  Age: 3 Month
  Sex: Female

DRUGS (1)
  1. PROPRANOLOL HYDROCHLORIDE (MANUFACTURER UNKNOWN) (PROPRANOLOL HYDROCHLORIDE)? [Suspect]
     Indication: EYE HAEMANGIOMA
     Route: 048

REACTIONS (2)
  - Off label use [None]
  - Hypotension [None]
